FAERS Safety Report 20739442 (Version 1)
Quarter: 2022Q2

REPORT INFORMATION
  Report Type: Report from Study
  Country: BE (occurrence: BE)
  Receive Date: 20220422
  Receipt Date: 20220422
  Transmission Date: 20220720
  Serious: Yes (Hospitalization)
  Sender: FDA-Public Use
  Company Number: BE-ABBVIE-22K-013-4366676-00

PATIENT
  Sex: Female
  Weight: 60 kg

DRUGS (5)
  1. CARBIDOPA\LEVODOPA [Suspect]
     Active Substance: CARBIDOPA\LEVODOPA
     Indication: Parkinson^s disease
     Route: 050
     Dates: start: 20211109, end: 202111
  2. CARBIDOPA\LEVODOPA [Suspect]
     Active Substance: CARBIDOPA\LEVODOPA
     Dosage: MD 5.5 ML; CD 1.5 ML/HR DURING 16HOURS; ED 1.0 ML
     Route: 050
     Dates: start: 20211110, end: 20211119
  3. CARBIDOPA\LEVODOPA [Suspect]
     Active Substance: CARBIDOPA\LEVODOPA
     Dosage: MD 5.5 ML; CD 1.3 ML/HR DURING 16HOURS; ED 1.0 ML
     Route: 050
     Dates: start: 20211119, end: 20211201
  4. CARBIDOPA\LEVODOPA [Suspect]
     Active Substance: CARBIDOPA\LEVODOPA
     Dosage: MD 5.2 ML; CD 1.3 ML/HR DURING 16HOURS; ED 1.0 ML
     Route: 050
     Dates: start: 20211201, end: 20220126
  5. CARBIDOPA\LEVODOPA [Suspect]
     Active Substance: CARBIDOPA\LEVODOPA
     Dosage: MD 5.2 ML; CD 1.3 ML/HR DURING 16HOURS; ED 1.0 ML
     Route: 050
     Dates: start: 20220126

REACTIONS (1)
  - Upper limb fracture [Unknown]

NARRATIVE: CASE EVENT DATE: 20220101
